FAERS Safety Report 16937197 (Version 2)
Quarter: 2019Q4

REPORT INFORMATION
  Report Type: Spontaneous
  Country: DE (occurrence: DE)
  Receive Date: 20191019
  Receipt Date: 20191022
  Transmission Date: 20200122
  Serious: Yes (Other)
  Sender: FDA-Public Use
  Company Number: DE-ROCHE-2434701

PATIENT
  Age: 0 Day
  Sex: Female
  Weight: 2.1 kg

DRUGS (2)
  1. RIVOTRIL [Suspect]
     Active Substance: CLONAZEPAM
     Indication: PRODUCT USED FOR UNKNOWN INDICATION
     Dosage: .125 MILLIGRAM?MATERNAL DOSE (0.13MG)
     Route: 064
     Dates: start: 20091203
  2. NEUPRO [Suspect]
     Active Substance: ROTIGOTINE
     Indication: RESTLESS LEGS SYNDROME
     Dosage: MATERNAL DOSE (1 MILLIGRAM)
     Route: 064
     Dates: start: 20090713, end: 20091203

REACTIONS (3)
  - Weight abnormal [Unknown]
  - Meningitis neonatal [Unknown]
  - Foetal exposure during pregnancy [Unknown]
